FAERS Safety Report 8083045-2 (Version None)
Quarter: 2012Q1

REPORT INFORMATION
  Report Type: 
  Country: None (occurrence: None)
  Receive Date: 20120127
  Receipt Date: 20110301
  Transmission Date: 20120608
  Serious: No
  Sender: FDA-Public Use
  Company Number: US-ABBOTT-11P-163-0708541-00

PATIENT
  Age: 37 Year
  Sex: Female

DRUGS (2)
  1. HUMIRA [Suspect]
     Indication: CROHN'S DISEASE
     Dates: start: 20101101, end: 20110226
  2. JOLIVETTE BIRTH CONTROL PILLS [Concomitant]
     Indication: ENDOMETRIOSIS

REACTIONS (1)
  - INJECTION SITE URTICARIA [None]
